FAERS Safety Report 6158474-4 (Version None)
Quarter: 2009Q2

REPORT INFORMATION
  Report Type: 
  Country: None (occurrence: None)
  Receive Date: 20090414
  Receipt Date: 20090414
  Transmission Date: 20091009
  Serious: No
  Sender: FDA-Public Use
  Company Number: None

PATIENT
  Age: 57 Year
  Sex: Male
  Weight: 98.8842 kg

DRUGS (1)
  1. MORPHINE SUL TAB [Suspect]
     Indication: ANALGESIA
     Dosage: 1 MG, PATIENT LOCKOUT OF 8 MINUTES AND 7.5MG ONE HOUR LIMIT)
     Route: 042
     Dates: start: 20090320, end: 20090301

REACTIONS (5)
  - ARRHYTHMIA [None]
  - EYE MOVEMENT DISORDER [None]
  - HEART RATE INCREASED [None]
  - HYPERHIDROSIS [None]
  - HYPOTENSION [None]
